FAERS Safety Report 8377826-5 (Version None)
Quarter: 2012Q2

REPORT INFORMATION
  Report Type: 
  Country: None (occurrence: None)
  Receive Date: 20120522
  Receipt Date: 20120514
  Transmission Date: 20120825
  Serious: Yes (Hospitalization)
  Sender: FDA-Public Use
  Company Number: IT-BRISTOL-MYERS SQUIBB COMPANY-16565384

PATIENT
  Age: 80 Year
  Sex: Male

DRUGS (10)
  1. LASIX [Concomitant]
     Dosage: 500MG TABS
  2. CARVEDILOL [Concomitant]
     Dosage: TAB
  3. REPAGLINIDE [Concomitant]
  4. PANTOPRAZOLE SODIUM [Concomitant]
  5. ASPIRIN [Suspect]
     Indication: PROPHYLAXIS
     Dosage: 1 TAB
     Route: 048
     Dates: start: 20110701, end: 20120206
  6. ALLOPURINOL [Concomitant]
     Dosage: 300MG TABLETS
  7. ATORVASTATIN CALCIUM [Concomitant]
     Dosage: ACTAVIS
  8. COUMADIN [Suspect]
     Indication: PROPHYLAXIS
     Dosage: INTERRUPTED ON AN UNK DATE AND RESTARTED ON 20JAN12, AGAIN INTERRUPTED ON 22JAN12
     Dates: start: 20110701
  9. LUVION [Concomitant]
     Dosage: 50MG TABLETS
  10. ENOXAPARIN SODIUM [Suspect]
     Indication: PROPHYLAXIS
     Dosage: 1DF : 4000IU SOLN FOR INJ,INTERRUP ON AN UNK DATE,RESTARTED ON 20JAN12, AGAIN INTERRUP ON 22JAN12.
     Route: 058
     Dates: start: 20120120

REACTIONS (2)
  - IMPLANT SITE HAEMATOMA [None]
  - ANAEMIA [None]
